APPROVED DRUG PRODUCT: RANITIDINE HYDROCHLORIDE
Active Ingredient: RANITIDINE HYDROCHLORIDE
Strength: EQ 75MG BASE
Dosage Form/Route: TABLET;ORAL
Application: A207579 | Product #001
Applicant: AUROBINDO PHARMA LTD
Approved: Nov 13, 2017 | RLD: No | RS: No | Type: DISCN